FAERS Safety Report 6809472-6 (Version None)
Quarter: 2010Q2

REPORT INFORMATION
  Report Type: 
  Country: None (occurrence: None)
  Receive Date: 20100630
  Receipt Date: 20100622
  Transmission Date: 20101027
  Serious: Yes (Other)
  Sender: FDA-Public Use
  Company Number: US-ALLERGAN-1006426US

PATIENT
  Age: 74 Year
  Sex: Female
  Weight: 45.351 kg

DRUGS (6)
  1. COMBIGAN [Suspect]
     Indication: INTRAOCULAR PRESSURE INCREASED
     Dosage: 1 GTT, BID
     Route: 047
     Dates: start: 20090701, end: 20100408
  2. COMBIGAN [Suspect]
     Indication: GLAUCOMA
     Dosage: 1 GTT, BID
     Route: 047
     Dates: start: 20100510
  3. XALATAN [Suspect]
     Indication: INTRAOCULAR PRESSURE INCREASED
     Dosage: UNK
     Route: 047
     Dates: start: 20100327, end: 20100408
  4. AVALIDE [Concomitant]
     Indication: HYPERTENSION
     Dosage: 300 MG, QD
     Route: 048
  5. AMILODIPINE [Concomitant]
     Dosage: 5 MG, QD
     Route: 048
  6. LEVOTHYROXINE SODIUM [Concomitant]
     Indication: HYPOTHYROIDISM
     Dosage: 150 MG, QD
     Route: 048

REACTIONS (4)
  - EYE IRRITATION [None]
  - EYE PRURITUS [None]
  - LACRIMATION INCREASED [None]
  - ULCERATIVE KERATITIS [None]
